FAERS Safety Report 9155532 (Version 1)
Quarter: 2013Q1

REPORT INFORMATION
  Report Type: Spontaneous
  Country: US (occurrence: US)
  Receive Date: 20130311
  Receipt Date: 20130311
  Transmission Date: 20140127
  Serious: Yes (Hospitalization)
  Sender: FDA-Public Use
  Company Number: US-GLAXOSMITHKLINE-A0996438A

PATIENT
  Sex: Female

DRUGS (1)
  1. AVANDIA [Suspect]
     Indication: DIABETES MELLITUS
     Route: 048

REACTIONS (9)
  - Injury [Not Recovered/Not Resolved]
  - Cardiac failure congestive [Unknown]
  - Cerebrovascular accident [Unknown]
  - Asthenia [Unknown]
  - Dyspnoea [Unknown]
  - Oxygen supplementation [Unknown]
  - Gait disturbance [Unknown]
  - Confusional state [Unknown]
  - Speech disorder [Unknown]
